FAERS Safety Report 16697452 (Version 2)
Quarter: 2019Q3

REPORT INFORMATION
  Report Type: Report from Study
  Country: IL (occurrence: IL)
  Receive Date: 20190813
  Receipt Date: 20190819
  Transmission Date: 20191004
  Serious: Yes (Death, Other)
  Sender: FDA-Public Use
  Company Number: IL-TAKEDA-2019TUS047724

PATIENT
  Age: 68 Year
  Sex: Female

DRUGS (2)
  1. BRIGATINIB [Suspect]
     Active Substance: BRIGATINIB
     Indication: LUNG NEOPLASM MALIGNANT
     Dosage: 90 MILLIGRAM
     Route: 048
     Dates: start: 20190808, end: 20190811
  2. BRIGATINIB [Suspect]
     Active Substance: BRIGATINIB
     Indication: EGFR GENE MUTATION

REACTIONS (1)
  - Lung neoplasm malignant [Fatal]
